FAERS Safety Report 10064242 (Version 2)
Quarter: 2014Q2

REPORT INFORMATION
  Report Type: Spontaneous
  Country: IT (occurrence: IT)
  Receive Date: 20140408
  Receipt Date: 20140417
  Transmission Date: 20141212
  Serious: Yes (Other)
  Sender: FDA-Public Use
  Company Number: IT-RANBAXY-2014RR-79929

PATIENT
  Age: 45 Year
  Sex: Male

DRUGS (1)
  1. PARACETAMOL [Suspect]
     Indication: PRODUCT USED FOR UNKNOWN INDICATION
     Dosage: 1 DF, COMPLETE
     Route: 048
     Dates: start: 20140209, end: 20140209

REACTIONS (1)
  - Urticaria [Recovering/Resolving]
